FAERS Safety Report 10510263 (Version 2)
Quarter: 2014Q4

REPORT INFORMATION
  Report Type: Report from Study
  Country: US (occurrence: US)
  Receive Date: 20141010
  Receipt Date: 20141010
  Transmission Date: 20150528
  Serious: Yes (Other)
  Sender: FDA-Public Use
  Company Number: US-BAYER-2014-113522

PATIENT
  Age: 37 Year
  Weight: 68.27 kg

DRUGS (1)
  1. MIRENA [Suspect]
     Active Substance: LEVONORGESTREL
     Indication: CONTRACEPTION
     Dosage: 20 MCG/24HR, CONT
     Route: 015
     Dates: start: 20120920, end: 20140730

REACTIONS (5)
  - Embedded device [Recovered/Resolved]
  - Menstruation irregular [Not Recovered/Not Resolved]
  - Post procedural haemorrhage [None]
  - Genital haemorrhage [None]
  - Intentional medical device removal by patient [None]

NARRATIVE: CASE EVENT DATE: 20120920
